FAERS Safety Report 6993851-0 (Version None)
Quarter: 2010Q3

REPORT INFORMATION
  Report Type: 
  Country: None (occurrence: None)
  Receive Date: 20100917
  Receipt Date: 20070625
  Transmission Date: 20110219
  Serious: Yes (Other)
  Sender: FDA-Public Use
  Company Number: US-ASTRAZENECA-2007UW09398

PATIENT
  Sex: Male
  Weight: 74.8 kg

DRUGS (16)
  1. SEROQUEL [Suspect]
     Indication: INSOMNIA
     Route: 048
     Dates: start: 20030101, end: 20050101
  2. SEROQUEL [Suspect]
     Indication: MANIA
     Route: 048
     Dates: start: 20030101, end: 20050101
  3. SEROQUEL [Suspect]
     Dosage: 25-800 MG
     Route: 048
     Dates: start: 20040602, end: 20051117
  4. SEROQUEL [Suspect]
     Dosage: 25-800 MG
     Route: 048
     Dates: start: 20040602, end: 20051117
  5. ABILIFY [Concomitant]
  6. HALDOL [Concomitant]
  7. NAVANE [Concomitant]
  8. TRAZODONE HCL [Concomitant]
     Dates: start: 19940708
  9. LITHIUM CARBONATE [Concomitant]
     Dates: start: 19901127
  10. PROZAC [Concomitant]
  11. CELEXA [Concomitant]
     Dates: start: 20010918
  12. DEPAKOTE [Concomitant]
     Dosage: 250-750 MG
     Dates: start: 20000914
  13. ZYPREXA [Concomitant]
     Dosage: 5-20 MG
     Dates: start: 20000914
  14. ATIVAN [Concomitant]
     Dosage: 1 MG, AS REQUIRED
     Dates: start: 20011015
  15. EFFEXOR XR [Concomitant]
     Dates: start: 20011015
  16. TOPAMAX [Concomitant]
     Dates: start: 20010918

REACTIONS (3)
  - DIABETES MELLITUS [None]
  - DIABETIC COMA [None]
  - DIABETIC KETOACIDOSIS [None]
